FAERS Safety Report 10243311 (Version 1)
Quarter: 2014Q2

REPORT INFORMATION
  Report Type: Spontaneous
  Country: US (occurrence: None)
  Receive Date: 20140616
  Receipt Date: 20140616
  Transmission Date: 20141212
  Serious: Yes (Life-Threatening)
  Sender: FDA-Public Use
  Company Number: None

PATIENT
  Age: 62 Year
  Sex: Female
  Weight: 64.41 kg

DRUGS (1)
  1. MOXIFLOXACIN [Suspect]
     Indication: SINUSITIS
     Dosage: 400MG/1 TABLET, ONCE DAILY, TAKEN BY MOUTH?1 TABLET AT 5:30PM ON 6/9/14
     Route: 048
     Dates: start: 20140609

REACTIONS (7)
  - Eye pruritus [None]
  - Palmar erythema [None]
  - Lip swelling [None]
  - Swollen tongue [None]
  - Anaphylactic reaction [None]
  - Loss of consciousness [None]
  - Product substitution issue [None]
